FAERS Safety Report 8002747-7 (Version None)
Quarter: 2011Q4

REPORT INFORMATION
  Report Type: 
  Country: None (occurrence: None)
  Receive Date: 20111222
  Receipt Date: 20111209
  Transmission Date: 20120403
  Serious: Yes (Hospitalization)
  Sender: FDA-Public Use
  Company Number: JP-WATSON-2011-20446

PATIENT
  Age: 26 Year
  Sex: Female

DRUGS (3)
  1. NORTRIPTYLINE HCL [Suspect]
     Indication: INTENTIONAL OVERDOSE
  2. AMOXAPINE [Suspect]
     Indication: INTENTIONAL OVERDOSE
  3. DIPHENHYDRAMINE HCL [Suspect]
     Indication: INTENTIONAL OVERDOSE

REACTIONS (11)
  - INTENTIONAL OVERDOSE [None]
  - CLONIC CONVULSION [None]
  - CARDIO-RESPIRATORY ARREST [None]
  - SOMNOLENCE [None]
  - METABOLIC ACIDOSIS [None]
  - VENTRICULAR FIBRILLATION [None]
  - BLOOD PRESSURE DECREASED [None]
  - TACHYPNOEA [None]
  - CIRCULATORY COLLAPSE [None]
  - COMA SCALE ABNORMAL [None]
  - SUPRAVENTRICULAR TACHYCARDIA [None]
